FAERS Safety Report 9101468 (Version 1)
Quarter: 2013Q1

REPORT INFORMATION
  Report Type: Spontaneous
  Country: US (occurrence: US)
  Receive Date: 20130215
  Receipt Date: 20130215
  Transmission Date: 20140127
  Serious: No
  Sender: FDA-Public Use
  Company Number: US-BAYER-2013-015814

PATIENT
  Age: 70 Year
  Sex: Male
  Weight: 135 kg

DRUGS (13)
  1. ALEVE CAPLET/TABLET,MIDOL EXTENDED RELIEF CAPLET [Suspect]
     Dosage: 2 DF, BID
     Route: 048
  2. HYDROCODONE [Concomitant]
  3. GABAPENTIN [Concomitant]
  4. ONE A DAY MEN^S 50 PLUS ADVANTAGE [Concomitant]
  5. OMEPRAZOLE [Concomitant]
  6. DOXAZOSIN [Concomitant]
  7. BAYER ASPIRIN REGIMEN ADULT LOW STRENGTH [Concomitant]
  8. LISINOPRIL [Concomitant]
  9. CLOPIDOGREL [Concomitant]
  10. SIMVASTATIN [Concomitant]
  11. METOPROLOL [Concomitant]
  12. CLARITIN [Concomitant]
  13. INSULIN [Concomitant]

REACTIONS (2)
  - Incorrect drug administration duration [None]
  - Drug ineffective [None]
